FAERS Safety Report 7305207-1 (Version None)
Quarter: 2011Q1

REPORT INFORMATION
  Report Type: 
  Country: None (occurrence: None)
  Receive Date: 20110222
  Receipt Date: 20110215
  Transmission Date: 20110831
  Serious: Yes (Hospitalization, Other)
  Sender: FDA-Public Use
  Company Number: US-PFIZER INC-2009289663

PATIENT
  Sex: Female

DRUGS (4)
  1. NICODERM [Concomitant]
     Dosage: UNK
  2. CHANTIX [Suspect]
     Dosage: UNK
     Dates: start: 20090101
  3. NICORETTE [Concomitant]
     Dosage: UNK
  4. PHENTERMINE [Concomitant]
     Dosage: 37.5 MG, UNK

REACTIONS (4)
  - SUICIDE ATTEMPT [None]
  - DRUG INEFFECTIVE [None]
  - DEPRESSION [None]
  - LIVER INJURY [None]
